FAERS Safety Report 7063584-3 (Version None)
Quarter: 2010Q4

REPORT INFORMATION
  Report Type: 
  Country: None (occurrence: None)
  Receive Date: 20101026
  Receipt Date: 20100810
  Transmission Date: 20110411
  Serious: No
  Sender: FDA-Public Use
  Company Number: US-ABBOTT-10P-163-0662771-00

PATIENT
  Age: 37 Year
  Sex: Female

DRUGS (1)
  1. LUPRON DEPOT [Suspect]
     Indication: PRODUCT USED FOR UNKNOWN INDICATION

REACTIONS (5)
  - ANXIETY [None]
  - DEPRESSED MOOD [None]
  - FATIGUE [None]
  - PSYCHIATRIC DECOMPENSATION [None]
  - PSYCHIATRIC SYMPTOM [None]
